FAERS Safety Report 8122190-X (Version None)
Quarter: 2012Q1

REPORT INFORMATION
  Report Type: 
  Country: None (occurrence: None)
  Receive Date: 20120208
  Receipt Date: 20120127
  Transmission Date: 20120608
  Serious: Yes (Hospitalization)
  Sender: FDA-Public Use
  Company Number: US-BAYER-2011-071066

PATIENT
  Age: 39 Year
  Sex: Female
  Weight: 113.38 kg

DRUGS (3)
  1. HYDROCHLOROTHIAZIDE [Concomitant]
     Indication: FLUID RETENTION
     Dosage: UNK UNK, QD
     Dates: start: 20010101
  2. YAZ [Suspect]
     Indication: CONTRACEPTION
     Dosage: UNK
     Dates: start: 20080501, end: 20081201
  3. DOXYCYCLINE [Concomitant]
     Dosage: 100 MG, BID

REACTIONS (4)
  - ANHEDONIA [None]
  - PAIN IN EXTREMITY [None]
  - DEEP VEIN THROMBOSIS [None]
  - ANXIETY [None]
